FAERS Safety Report 15857959 (Version 3)
Quarter: 2019Q1

REPORT INFORMATION
  Report Type: Spontaneous
  Country: US (occurrence: US)
  Receive Date: 20190123
  Receipt Date: 20190227
  Transmission Date: 20190417
  Serious: Yes (Other)
  Sender: FDA-Public Use
  Company Number: US-BTG-201900015

PATIENT
  Age: 65 Year
  Sex: Female

DRUGS (7)
  1. VARITHENA [Suspect]
     Active Substance: POLIDOCANOL
     Indication: PERIPHERAL VENOUS DISEASE
     Dosage: 9CC
     Route: 065
     Dates: start: 20181220
  2. VARITHENA [Suspect]
     Active Substance: POLIDOCANOL
     Indication: PERIPHERAL VENOUS DISEASE
     Dosage: {15 CC FOAM
     Route: 065
     Dates: start: 20181221, end: 20181221
  3. SOTRADECOL [Interacting]
     Active Substance: SODIUM TETRADECYL SULFATE
     Indication: SCLEROTHERAPY
     Dosage: 1:3 SOLUTION/AIR
     Route: 065
     Dates: start: 20181113
  4. SOTRADECOL [Interacting]
     Active Substance: SODIUM TETRADECYL SULFATE
     Indication: SCLEROTHERAPY
     Dosage: 1:3 SOLUTION/AIR
     Route: 065
     Dates: start: 20181220
  5. SOTRADECOL [Interacting]
     Active Substance: SODIUM TETRADECYL SULFATE
     Indication: SCLEROTHERAPY
     Dosage: 1:3 SOLUTION/AIR
     Route: 065
     Dates: start: 20181106
  6. VARITHENA [Suspect]
     Active Substance: POLIDOCANOL
     Indication: PERIPHERAL VENOUS DISEASE
     Dosage: 9CC
     Route: 065
     Dates: start: 20181106
  7. SOTRADECOL [Interacting]
     Active Substance: SODIUM TETRADECYL SULFATE
     Indication: SCLEROTHERAPY
     Route: 065
     Dates: start: 20181221, end: 20181221

REACTIONS (8)
  - Air embolism [Unknown]
  - Headache [None]
  - Nausea [Unknown]
  - Generalised tonic-clonic seizure [Recovered/Resolved]
  - Loss of consciousness [Unknown]
  - Road traffic accident [Unknown]
  - Vomiting [Unknown]
  - Dizziness [Recovered/Resolved]

NARRATIVE: CASE EVENT DATE: 20181107
